FAERS Safety Report 9326272 (Version 1)
Quarter: 2013Q2

REPORT INFORMATION
  Report Type: Report from Study
  Country: MX (occurrence: MX)
  Receive Date: 20130604
  Receipt Date: 20130604
  Transmission Date: 20140414
  Serious: Yes (Other)
  Sender: FDA-Public Use
  Company Number: PHHY2013MX056393

PATIENT
  Age: 65 Year
  Sex: Female

DRUGS (1)
  1. RASILEZ HCT [Suspect]
     Indication: HYPERTENSION
     Dosage: 1 DF(320/12.5MG), DAILY
     Route: 048
     Dates: end: 201305

REACTIONS (1)
  - Cardiomyopathy [Not Recovered/Not Resolved]
